FAERS Safety Report 21178059 (Version 1)
Quarter: 2022Q3

REPORT INFORMATION
  Report Type: Spontaneous
  Country: DK (occurrence: DK)
  Receive Date: 20220805
  Receipt Date: 20220805
  Transmission Date: 20221027
  Serious: Yes (Hospitalization)
  Sender: FDA-Public Use
  Company Number: DK-NOVOPROD-945070

PATIENT
  Age: 40 Year
  Sex: Female
  Weight: 93.288 kg

DRUGS (1)
  1. SAXENDA [Suspect]
     Active Substance: LIRAGLUTIDE
     Indication: Obesity
     Dosage: DOSAGE: UNKNOWN

REACTIONS (1)
  - Stoma obstruction [Unknown]

NARRATIVE: CASE EVENT DATE: 20220701
